FAERS Safety Report 4824385-7 (Version None)
Quarter: 2005Q4

REPORT INFORMATION
  Report Type: 
  Country: None (occurrence: None)
  Receive Date: 20051108
  Receipt Date: 20051021
  Transmission Date: 20060501
  Serious: Yes (Hospitalization)
  Sender: FDA-Public Use
  Company Number: US_0509121880

PATIENT
  Age: 61 Year
  Sex: Male
  Weight: 110 kg

DRUGS (15)
  1. HUMATROPE [Suspect]
     Indication: GROWTH HORMONE DEFICIENCY
     Dates: start: 20040916, end: 20050801
  2. SYNTHROID [Concomitant]
  3. ANDROGEL [Concomitant]
  4. GLUCOPHAGE [Concomitant]
  5. LIPITOR [Concomitant]
  6. AMARAYL (GLIMEPIRIDE) [Concomitant]
  7. ALLOPURINOL [Concomitant]
  8. CALCIUM AND VITAMIN D [Concomitant]
  9. DITROOPAN /SCH/ (OXYBUTYNIN HYDROCHLORIDE) [Concomitant]
  10. DDAVP DESMOPRESSIN ACETATE) [Concomitant]
  11. HYDROCORTISONE [Concomitant]
  12. REGULAR INSULIN [Concomitant]
  13. ELAVIL [Concomitant]
  14. MAGNESIUM OXIDE [Concomitant]
  15. PROTONIX [Concomitant]

REACTIONS (13)
  - BENIGN PROSTATIC HYPERPLASIA [None]
  - BLADDER HYPERTROPHY [None]
  - BLADDER OBSTRUCTION [None]
  - CONDITION AGGRAVATED [None]
  - DEHYDRATION [None]
  - DIARRHOEA [None]
  - HEADACHE [None]
  - HYPONATRAEMIA [None]
  - INCORRECT DOSE ADMINISTERED [None]
  - MUSCLE SPASMS [None]
  - NAUSEA [None]
  - NEUROGENIC BLADDER [None]
  - VOMITING [None]
